FAERS Safety Report 8553875 (Version 4)
Quarter: 2013Q2

REPORT INFORMATION
  Report Type: Report from Study
  Country: IT (occurrence: IT)
  Receive Date: 20120509
  Receipt Date: 20130424
  Transmission Date: 20140414
  Serious: Yes (Other)
  Sender: FDA-Public Use
  Company Number: IT-ROCHE-1066444

PATIENT
  Age: 49 Year
  Sex: Female
  Weight: 65 kg

DRUGS (2)
  1. PEG-INTERFERON ALFA 2A [Suspect]
     Indication: HEPATITIS C
     Route: 065
     Dates: start: 20111118
  2. ALISPORIVIR [Suspect]
     Indication: HEPATITIS C
     Route: 065
     Dates: start: 20111118, end: 20111125

REACTIONS (1)
  - Hypotension [Recovered/Resolved]
